FAERS Safety Report 4550995-0 (Version None)
Quarter: 2005Q1

REPORT INFORMATION
  Report Type: 
  Country: None (occurrence: None)
  Receive Date: 20050113
  Receipt Date: 20040122
  Transmission Date: 20050727
  Serious: No
  Sender: FDA-Public Use
  Company Number: US-BRISTOL-MYERS SQUIBB COMPANY-12485603

PATIENT
  Age: 55 Year
  Sex: Male
  Weight: 66 kg

DRUGS (9)
  1. CARDIOLITE [Suspect]
     Indication: CARDIAC STRESS TEST
     Dosage: 25.7 MCI IN 0.7ML
     Route: 042
     Dates: start: 20040115, end: 20040115
  2. ATENOLOL [Concomitant]
  3. NIASPAN [Concomitant]
  4. ALTACE [Concomitant]
  5. ZOLOFT [Concomitant]
  6. ACTOS [Concomitant]
  7. AMARYL [Concomitant]
  8. LEXAPRO [Concomitant]
  9. ASPIRIN [Concomitant]

REACTIONS (1)
  - COUGH [None]
